FAERS Safety Report 8429057-8 (Version None)
Quarter: 2012Q2

REPORT INFORMATION
  Report Type: 
  Country: None (occurrence: None)
  Receive Date: 20120612
  Receipt Date: 20120601
  Transmission Date: 20120825
  Serious: Yes (Other)
  Sender: FDA-Public Use
  Company Number: SE-JNJFOC-20120602723

PATIENT
  Sex: Female

DRUGS (3)
  1. CONCERTA [Suspect]
     Indication: ATTENTION DEFICIT/HYPERACTIVITY DISORDER
     Dosage: AT LUNCH
     Route: 048
  2. CONCERTA [Suspect]
     Dosage: IN THE MORNING
     Route: 048
  3. CONCERTA [Suspect]
     Dosage: AT NIGHT
     Route: 048

REACTIONS (6)
  - ANXIETY [None]
  - ABNORMAL DREAMS [None]
  - MIGRAINE [None]
  - HYPERHIDROSIS [None]
  - OVERDOSE [None]
  - PALPITATIONS [None]
